FAERS Safety Report 7374473-9 (Version None)
Quarter: 2011Q1

REPORT INFORMATION
  Report Type: 
  Country: None (occurrence: None)
  Receive Date: 20110325
  Receipt Date: 20110103
  Transmission Date: 20110831
  Serious: No
  Sender: FDA-Public Use
  Company Number: US-MYLANLABS-2011S1000402

PATIENT
  Age: 54 Year
  Sex: Female

DRUGS (4)
  1. ANTIHYPERTENSIVES [Concomitant]
  2. FENTANYL-100 [Suspect]
     Indication: PAIN
     Dosage: Q72H
     Route: 062
     Dates: start: 20100101
  3. CHOLESTEROL MEDICATION [Concomitant]
  4. VICODIN [Concomitant]

REACTIONS (1)
  - IMPAIRED GASTRIC EMPTYING [None]
